FAERS Safety Report 4661027-8 (Version None)
Quarter: 2005Q2

REPORT INFORMATION
  Report Type: 
  Country: None (occurrence: None)
  Receive Date: 20050511
  Receipt Date: 20050502
  Transmission Date: 20051028
  Serious: Yes (Life-Threatening, Hospitalization, Other)
  Sender: FDA-Public Use
  Company Number: 2004095700

PATIENT
  Age: 50 Year
  Sex: Female
  Weight: 117.9352 kg

DRUGS (9)
  1. SOLU-MEDROL [Suspect]
     Indication: MYELITIS TRANSVERSE
     Dosage: 47.2 GRAM (47.2 GRAM, ONCE), INTRAVENOUS
     Route: 042
     Dates: start: 20040928, end: 20040928
  2. PREDNISONE [Concomitant]
  3. GABAPENTIN [Concomitant]
  4. RAMIPRIL [Concomitant]
  5. SERTRALINE HCL [Concomitant]
  6. ATORVASTATIN CALCIUM [Concomitant]
  7. VITAMIN B (VITAMIN B) [Concomitant]
  8. ASCORBIC ACID [Concomitant]
  9. TOCOPHEROL (TOCOPHEROL) [Concomitant]

REACTIONS (17)
  - ACCIDENTAL OVERDOSE [None]
  - AGITATION [None]
  - BLOOD CREATINE PHOSPHOKINASE INCREASED [None]
  - BLOOD GLUCOSE INCREASED [None]
  - DIALYSIS [None]
  - FLUID OVERLOAD [None]
  - HEPATIC ENZYME INCREASED [None]
  - HYPERTENSION [None]
  - INCORRECT DOSE ADMINISTERED [None]
  - INFUSION RELATED REACTION [None]
  - MEDICATION ERROR [None]
  - MYALGIA [None]
  - NAUSEA [None]
  - RENAL FAILURE ACUTE [None]
  - RENAL TUBULAR NECROSIS [None]
  - RESTLESSNESS [None]
  - VISION BLURRED [None]
